FAERS Safety Report 7635427-8 (Version None)
Quarter: 2011Q3

REPORT INFORMATION
  Report Type: 
  Country: None (occurrence: None)
  Receive Date: 20110718
  Receipt Date: 20110705
  Transmission Date: 20111222
  Serious: Yes (Other)
  Sender: FDA-Public Use
  Company Number: FK201101343

PATIENT
  Age: 74 Year
  Sex: Female

DRUGS (6)
  1. DEXAMETHASONE [Concomitant]
  2. OXALIPLATIN [Suspect]
     Indication: RECTAL CANCER RECURRENT
  3. FLUOROURACIL [Suspect]
     Indication: RECTAL CANCER RECURRENT
  4. LEUCOVORIN CALCIUM [Suspect]
     Indication: RECTAL CANCER RECURRENT
  5. BEVACIZUMAB (BEVACIZUMAB) (BEVACIZUMAB) [Suspect]
     Indication: RECTAL CANCER RECURRENT
  6. SERTONIN RECEPTOR ANTAGONIST [Concomitant]

REACTIONS (2)
  - DUODENAL ULCER HAEMORRHAGE [None]
  - GASTRIC ULCER [None]
